FAERS Safety Report 9613625 (Version 1)
Quarter: 2013Q4

REPORT INFORMATION
  Report Type: Spontaneous
  Country: CH (occurrence: None)
  Receive Date: 20131008
  Receipt Date: 20131008
  Transmission Date: 20140711
  Serious: Yes (Hospitalization)
  Sender: FDA-Public Use
  Company Number: 20130523

PATIENT
  Age: 40 Year
  Sex: Female

DRUGS (1)
  1. FERINJECT [Suspect]
     Indication: PRODUCT USED FOR UNKNOWN INDICATION
     Dosage: 500 MG TWO TIMES IN TOTAL, INTRAVENOUS DRIP?
     Route: 041
     Dates: start: 2013

REACTIONS (4)
  - Vomiting [None]
  - Retching [None]
  - Urinary incontinence [None]
  - Nausea [None]
